FAERS Safety Report 5751370-3 (Version None)
Quarter: 2008Q2

REPORT INFORMATION
  Report Type: 
  Country: None (occurrence: None)
  Receive Date: 20080528
  Receipt Date: 20080519
  Transmission Date: 20081010
  Serious: Yes (Other)
  Sender: FDA-Public Use
  Company Number: JP-PFIZER INC-2008043467

PATIENT
  Age: 34 Year
  Sex: Female

DRUGS (2)
  1. ZITHROMAX [Suspect]
     Dosage: DAILY DOSE:500MG
     Route: 048
     Dates: start: 20080507, end: 20080509
  2. LOXONIN [Concomitant]

REACTIONS (2)
  - BLOOD ALBUMIN DECREASED [None]
  - OEDEMA [None]
